FAERS Safety Report 10527850 (Version 6)
Quarter: 2015Q4

REPORT INFORMATION
  Report Type: Spontaneous
  Country: US (occurrence: US)
  Receive Date: 20141020
  Receipt Date: 20151228
  Transmission Date: 20160304
  Serious: Yes (Other)
  Sender: FDA-Public Use
  Company Number: US-PFIZER INC-2014284244

PATIENT
  Age: 62 Year
  Sex: Male
  Weight: 86.17 kg

DRUGS (14)
  1. ASPIRIN. [Concomitant]
     Active Substance: ASPIRIN
     Indication: CARDIAC DISORDER
     Dosage: 81 MG, 1X/DAY
     Route: 048
     Dates: start: 2002
  2. LYRICA [Suspect]
     Active Substance: PREGABALIN
     Indication: SCIATICA
     Dosage: 175 MG, (50MG AM + 125MG PM)
     Dates: start: 201409
  3. LYRICA [Suspect]
     Active Substance: PREGABALIN
     Indication: HYPOAESTHESIA
     Dosage: 300 MG, DAILY
  4. METOPROLOL SUCCINATE. [Concomitant]
     Active Substance: METOPROLOL SUCCINATE
     Indication: HYPERTENSION
     Dosage: 25 MG, 1X/DAY
     Route: 048
     Dates: start: 2002
  5. LYRICA [Suspect]
     Active Substance: PREGABALIN
     Indication: PAIN
     Dosage: 125 MG, DAILY (50MG Q AM AND 75MG Q PM)
  6. LYRICA [Suspect]
     Active Substance: PREGABALIN
     Dosage: TWO 50MG CAPSULES IN THE MORNING AND A 50MG AND A 75MG CAPSULE AT NIGHT
  7. LYRICA [Suspect]
     Active Substance: PREGABALIN
     Dosage: 275 MG, DAILY
  8. QUINAPRIL [Concomitant]
     Active Substance: QUINAPRIL\QUINAPRIL HYDROCHLORIDE
     Dosage: 2.5 MG, 1X/DAY
     Dates: start: 2002
  9. CRESTOR [Concomitant]
     Active Substance: ROSUVASTATIN CALCIUM
     Dosage: 20 MG, 1X/DAY
     Dates: start: 2002
  10. BENADRYL [Concomitant]
     Active Substance: DIPHENHYDRAMINE HYDROCHLORIDE
     Indication: SEASONAL ALLERGY
     Dosage: 1 DF, 1X/DAY
     Route: 048
     Dates: start: 2002
  11. FISH OIL [Concomitant]
     Active Substance: FISH OIL
     Indication: CARDIAC FAILURE
     Dosage: 4000 MG, 1X/DAY
     Route: 048
     Dates: start: 2002
  12. ALEVE [Concomitant]
     Active Substance: NAPROXEN SODIUM
     Indication: OSTEOARTHRITIS
     Dosage: 4 DF, DAILY
     Route: 048
     Dates: start: 2002
  13. FLONASE [Concomitant]
     Active Substance: FLUTICASONE PROPIONATE
     Indication: SEASONAL ALLERGY
     Dosage: 4 DF, 1X/DAY
     Route: 045
  14. ATORVASTATIN [Concomitant]
     Active Substance: ATORVASTATIN
     Indication: BLOOD CHOLESTEROL INCREASED
     Dosage: 20 MG, 1X/DAY
     Route: 048

REACTIONS (8)
  - Drug ineffective [Not Recovered/Not Resolved]
  - Gait disturbance [Recovered/Resolved]
  - Back pain [Not Recovered/Not Resolved]
  - Spinal disorder [Unknown]
  - Nausea [Recovered/Resolved]
  - Drug intolerance [Recovered/Resolved]
  - Balance disorder [Recovered/Resolved]
  - Fibromyalgia [Not Recovered/Not Resolved]
